FAERS Safety Report 7903235-6 (Version None)
Quarter: 2011Q4

REPORT INFORMATION
  Report Type: 
  Country: None (occurrence: None)
  Receive Date: 20111109
  Receipt Date: 20111102
  Transmission Date: 20120403
  Serious: Yes (Hospitalization)
  Sender: FDA-Public Use
  Company Number: FR-JNJFOC-20111009848

PATIENT
  Sex: Female

DRUGS (10)
  1. MEMANTINE HYDROCHLORIDE [Suspect]
     Indication: DEMENTIA ALZHEIMER'S TYPE
     Route: 048
     Dates: end: 20110722
  2. ESCITALOPRAM OXALATE [Concomitant]
     Indication: ANXIETY
     Route: 048
     Dates: start: 20110602, end: 20110715
  3. DIOSMIN [Suspect]
     Indication: SENSATION OF HEAVINESS
     Route: 048
     Dates: end: 20110722
  4. UVEDOSE [Suspect]
     Indication: VITAMIN D DEFICIENCY
     Route: 048
     Dates: end: 20110722
  5. GALANTAMINE HYDROBROMIDE [Suspect]
     Indication: DEMENTIA ALZHEIMER'S TYPE
     Route: 048
     Dates: end: 20110722
  6. CALCIUM CARBONATE [Suspect]
     Indication: CALCIUM DEFICIENCY
     Route: 048
     Dates: end: 20110722
  7. CLONAZEPAM [Concomitant]
     Indication: EPILEPSY
     Route: 048
  8. COUMADIN [Concomitant]
     Indication: THROMBOSIS PROPHYLAXIS
     Route: 048
     Dates: start: 20110602
  9. TANAKAN [Suspect]
     Indication: DEMENTIA ALZHEIMER'S TYPE
     Route: 048
     Dates: end: 20110722
  10. DEPAMIDE [Suspect]
     Indication: PRODUCT USED FOR UNKNOWN INDICATION
     Route: 048
     Dates: start: 20110717, end: 20110722

REACTIONS (1)
  - HAEMOLYTIC ANAEMIA [None]
